FAERS Safety Report 5299068-2 (Version None)
Quarter: 2007Q2

REPORT INFORMATION
  Report Type: 
  Country: None (occurrence: None)
  Receive Date: 20070417
  Receipt Date: 20070410
  Transmission Date: 20071010
  Serious: Yes (Other)
  Sender: FDA-Public Use
  Company Number: 2007-002006

PATIENT
  Age: 37 Year
  Sex: Male
  Weight: 95 kg

DRUGS (11)
  1. FLOLAN [Suspect]
     Dosage: 137NGKM UNKNOWN
     Route: 042
     Dates: start: 20060622
  2. K-DUR 10 [Concomitant]
     Dosage: 20MEQ AS DIRECTED
     Route: 048
  3. HYDROCORTISONE [Concomitant]
     Dosage: 20MG PER DAY
     Route: 048
  4. METOLAZONE [Concomitant]
     Dosage: 2.5MG PER DAY
     Route: 048
  5. ZOFRAN [Concomitant]
     Dosage: 4MG AS REQUIRED
     Route: 048
  6. PROTONIX [Concomitant]
     Dosage: 40MG PER DAY
     Route: 048
  7. FUROSEMIDE [Concomitant]
     Dosage: 80MG PER DAY
     Route: 048
  8. SILDENAFIL CITRATE [Concomitant]
     Dosage: 20MG PER DAY
     Route: 048
  9. LORAZEPAM [Concomitant]
     Route: 048
  10. TRAMADOL HCL [Concomitant]
     Dosage: 50MG PER DAY
     Route: 048
  11. TRACLEER [Concomitant]
     Dosage: 125MG THREE TIMES PER DAY
     Route: 048

REACTIONS (2)
  - CATHETER RELATED COMPLICATION [None]
  - PHARMACEUTICAL PRODUCT COMPLAINT [None]
